FAERS Safety Report 7218440-4 (Version None)
Quarter: 2011Q1

REPORT INFORMATION
  Report Type: 
  Country: None (occurrence: None)
  Receive Date: 20110110
  Receipt Date: 20110106
  Transmission Date: 20110831
  Serious: Yes (Hospitalization)
  Sender: FDA-Public Use
  Company Number: DE-ABBOTT-10P-062-0692168-00

PATIENT
  Sex: Male
  Weight: 100 kg

DRUGS (4)
  1. PHENPROCOUMON [Concomitant]
     Indication: VENOUS THROMBOSIS
     Dates: start: 19890101
  2. HUMIRA [Suspect]
     Indication: PSORIASIS
     Route: 058
     Dates: start: 20100510, end: 20101101
  3. CEFUROXIME [Concomitant]
     Indication: PRODUCT USED FOR UNKNOWN INDICATION
  4. RAMIPRIL [Concomitant]
     Indication: PRODUCT USED FOR UNKNOWN INDICATION

REACTIONS (4)
  - IMPAIRED HEALING [None]
  - VARICOSE VEIN [None]
  - HYPERTENSION [None]
  - SUBCUTANEOUS ABSCESS [None]
